FAERS Safety Report 10982909 (Version 1)
Quarter: 2015Q2

REPORT INFORMATION
  Report Type: Spontaneous
  Country: US (occurrence: None)
  Receive Date: 20150402
  Receipt Date: 20150402
  Transmission Date: 20150821
  Serious: No
  Sender: FDA-Public Use
  Company Number: None

PATIENT
  Age: 34 Year
  Sex: Female
  Weight: 54.43 kg

DRUGS (3)
  1. PERIOGARD [Suspect]
     Active Substance: CHLORHEXIDINE GLUCONATE
     Indication: GINGIVAL GRAFT
     Dosage: 15 ML TWICE, 30 SECONDS, TWICE DAILY, TAKEN BY MOUTH
     Route: 048
     Dates: start: 20150320, end: 20150326
  2. NUVARING [Concomitant]
     Active Substance: ETHINYL ESTRADIOL\ETONOGESTREL
  3. MULTIVITAMIN [Concomitant]
     Active Substance: VITAMINS

REACTIONS (10)
  - Lip swelling [None]
  - Lip pruritus [None]
  - Gingival pain [None]
  - Chapped lips [None]
  - Gingival swelling [None]
  - Oral pruritus [None]
  - Salivary gland pain [None]
  - Swollen tongue [None]
  - Lip dry [None]
  - Hypoaesthesia oral [None]

NARRATIVE: CASE EVENT DATE: 20150323
